FAERS Safety Report 9949232 (Version 1)
Quarter: 2014Q1

REPORT INFORMATION
  Report Type: Spontaneous
  Country: GB (occurrence: GB)
  Receive Date: 20140304
  Receipt Date: 20140304
  Transmission Date: 20141002
  Serious: Yes (Hospitalization)
  Sender: FDA-Public Use
  Company Number: GB-UCBSA-113640

PATIENT
  Age: 66 Year
  Sex: Male

DRUGS (3)
  1. CIMZIA [Suspect]
     Indication: RHEUMATOID ARTHRITIS
     Route: 058
     Dates: start: 201207, end: 2014
  2. HYDROXYCHLOROQUINE [Concomitant]
     Dosage: UNKNOWN
  3. METHOTREXATE [Concomitant]
     Dosage: UNKNOWN
     Dates: end: 2014

REACTIONS (1)
  - Lower respiratory tract infection [Recovering/Resolving]
